FAERS Safety Report 19754886 (Version 1)
Quarter: 2021Q3

REPORT INFORMATION
  Report Type: Other
  Country: FR (occurrence: FR)
  Receive Date: 20210827
  Receipt Date: 20210827
  Transmission Date: 20211014
  Serious: Yes (Hospitalization)
  Sender: FDA-Public Use
  Company Number: FR-CADILA HEALTHCARE LIMITED-FR-ZYDUS-069123

PATIENT

DRUGS (2)
  1. LOXAPAC [LOXAPINE SUCCINATE] [Interacting]
     Active Substance: LOXAPINE SUCCINATE
     Indication: HALLUCINATION
     Dosage: 50 MILLIGRAM
     Route: 048
     Dates: start: 202105, end: 20210702
  2. PAROXETINE. [Suspect]
     Active Substance: PAROXETINE
     Indication: DEPRESSION
     Dosage: 20 MILLIGRAM
     Route: 048

REACTIONS (3)
  - Extrapyramidal disorder [Recovering/Resolving]
  - Drug interaction [Recovering/Resolving]
  - Drug level increased [Recovering/Resolving]

NARRATIVE: CASE EVENT DATE: 202105
